FAERS Safety Report 8179662-1 (Version None)
Quarter: 2012Q1

REPORT INFORMATION
  Report Type: 
  Country: None (occurrence: None)
  Receive Date: 20120302
  Receipt Date: 20120223
  Transmission Date: 20120608
  Serious: Yes (Hospitalization, Other)
  Sender: FDA-Public Use
  Company Number: NO-JNJFOC-20120213992

PATIENT

DRUGS (19)
  1. DOXORUBICIN HCL [Suspect]
     Indication: SARCOMA
     Route: 042
  2. IFOSFAMIDE [Suspect]
     Route: 042
  3. MESNA [Suspect]
     Route: 042
  4. DOXORUBICIN HCL [Suspect]
     Route: 042
  5. DOXORUBICIN HCL [Suspect]
     Route: 042
  6. IFOSFAMIDE [Suspect]
     Route: 042
  7. MESNA [Suspect]
     Route: 042
  8. MESNA [Suspect]
     Route: 042
  9. DOXORUBICIN HCL [Suspect]
     Route: 042
  10. DOXORUBICIN HCL [Suspect]
     Route: 042
  11. IFOSFAMIDE [Suspect]
     Route: 042
  12. IFOSFAMIDE [Suspect]
     Indication: SARCOMA
     Route: 042
  13. IFOSFAMIDE [Suspect]
     Route: 042
  14. IFOSFAMIDE [Suspect]
     Route: 042
  15. MESNA [Suspect]
     Indication: SARCOMA
     Route: 042
  16. MESNA [Suspect]
     Route: 042
  17. MESNA [Suspect]
     Route: 042
  18. DOXORUBICIN HCL [Suspect]
     Route: 042
  19. RADIATION THERAPY NOS [Suspect]
     Indication: SARCOMA
     Route: 065

REACTIONS (2)
  - HOSPITALISATION [None]
  - OFF LABEL USE [None]
